FAERS Safety Report 13662823 (Version 5)
Quarter: 2020Q2

REPORT INFORMATION
  Report Type: Spontaneous
  Country: CA (occurrence: CA)
  Receive Date: 20170619
  Receipt Date: 20200625
  Transmission Date: 20200713
  Serious: Yes (Death, Hospitalization, Other)
  Sender: FDA-Public Use
  Company Number: CA-BAXTER-2017BAX023446

PATIENT
  Age: 31 Year
  Sex: Female

DRUGS (46)
  1. DIAZEPAM. [Suspect]
     Active Substance: DIAZEPAM
     Indication: SEIZURE
     Route: 065
  2. METOCLOPRAMIDE HYDROCHLORIDE. [Suspect]
     Active Substance: METOCLOPRAMIDE HYDROCHLORIDE
     Indication: PROPHYLAXIS
     Dosage: DOSAGE FORM: NOT SPECIFIED
     Route: 042
  3. PAROXETINE HYDROCHLORIDE. [Suspect]
     Active Substance: PAROXETINE HYDROCHLORIDE
     Indication: BIPOLAR DISORDER
     Dosage: DOSAGE FORM: TABLETS
     Route: 065
  4. PAROXETINE HYDROCHLORIDE. [Suspect]
     Active Substance: PAROXETINE HYDROCHLORIDE
     Indication: FOETAL EXPOSURE DURING PREGNANCY
  5. PROPOFOL. [Suspect]
     Active Substance: PROPOFOL
     Route: 042
  6. THIOPENTAL [Suspect]
     Active Substance: THIOPENTAL
     Route: 042
  7. THIOPENTAL [Suspect]
     Active Substance: THIOPENTAL
     Route: 042
  8. SUCCINYLCHOLINE [Suspect]
     Active Substance: SUCCINYLCHOLINE
     Indication: ENDOTRACHEAL INTUBATION
     Route: 042
  9. 5% DEXTROSE INJECTION [Suspect]
     Active Substance: DEXTROSE
     Indication: FOETAL EXPOSURE DURING PREGNANCY
     Route: 065
  10. PROPOFOL. [Suspect]
     Active Substance: PROPOFOL
     Indication: FOETAL EXPOSURE DURING PREGNANCY
  11. ATIVAN [Suspect]
     Active Substance: LORAZEPAM
     Indication: STATUS EPILEPTICUS
  12. SODIUM CITRATE. [Suspect]
     Active Substance: SODIUM CITRATE
     Indication: PROPHYLAXIS
     Dosage: DOSAGE FORM NOT SPECIFIED
     Route: 048
  13. THIOPENTAL [Suspect]
     Active Substance: THIOPENTAL
     Dosage: DOSAGE FORM: INTRAVENOUS INFUSION
     Route: 042
  14. CALCIUM CHLORIDE. [Suspect]
     Active Substance: CALCIUM CHLORIDE
     Indication: PRODUCT USED FOR UNKNOWN INDICATION
     Dosage: DOSAGE FORM: NOT SPECIFIED
     Route: 065
  15. 3200 MCG/ML  DOPAMINE HYDROCHLORIDE AND 5% DEXTROSE INJECTION [Suspect]
     Active Substance: DOPAMINE HYDROCHLORIDE
     Indication: HYPOTENSION
     Route: 065
  16. ATIVAN [Suspect]
     Active Substance: LORAZEPAM
     Indication: BIPOLAR DISORDER
     Dosage: DOSAGE FORM NOT SPECIFIED
     Route: 065
  17. LORAZEPAM. [Suspect]
     Active Substance: LORAZEPAM
     Indication: STATUS EPILEPTICUS
     Dosage: DOSAGE FORM NOT SPECIFIED
     Route: 065
  18. METOCLOPRAMIDE HYDROCHLORIDE. [Suspect]
     Active Substance: METOCLOPRAMIDE HYDROCHLORIDE
     Indication: FOETAL EXPOSURE DURING PREGNANCY
  19. PROPOFOL. [Suspect]
     Active Substance: PROPOFOL
     Indication: SEIZURE
     Route: 042
  20. PROPOFOL. [Suspect]
     Active Substance: PROPOFOL
     Dosage: DOSAGE FORM: ORAL EMULSION
     Route: 042
  21. DIAZEPAM. [Suspect]
     Active Substance: DIAZEPAM
     Indication: STATUS EPILEPTICUS
     Dosage: DOSAGE FORM NOT SPECIFIED
     Route: 065
  22. MAGNESIUM SULFATE. [Suspect]
     Active Substance: MAGNESIUM SULFATE
     Indication: STATUS EPILEPTICUS
     Dosage: DOSAGE FORM NOT SPECIFIED
     Route: 065
  23. MAGNESIUM SULFATE. [Suspect]
     Active Substance: MAGNESIUM SULFATE
     Indication: FOETAL EXPOSURE DURING PREGNANCY
  24. PHENYTOIN. [Suspect]
     Active Substance: PHENYTOIN
     Indication: SEIZURE
     Route: 065
  25. PHENYTOIN. [Suspect]
     Active Substance: PHENYTOIN
     Indication: FOETAL EXPOSURE DURING PREGNANCY
  26. PROPOFOL. [Suspect]
     Active Substance: PROPOFOL
     Indication: STATUS EPILEPTICUS
     Route: 042
  27. SODIUM CITRATE. [Suspect]
     Active Substance: SODIUM CITRATE
     Indication: FOETAL EXPOSURE DURING PREGNANCY
     Route: 065
  28. PROPOFOL. [Suspect]
     Active Substance: PROPOFOL
     Indication: STATUS EPILEPTICUS
     Route: 042
  29. THIOPENTAL [Suspect]
     Active Substance: THIOPENTAL
     Indication: STATUS EPILEPTICUS
     Dosage: DOSAGE FORM: INTRAVENOUS INFUSION
     Route: 042
  30. THIOPENTAL [Suspect]
     Active Substance: THIOPENTAL
     Indication: ENDOTRACHEAL INTUBATION
     Dosage: DOSAGE FORM: INTRAVENOUS INFUSION
     Route: 042
  31. THIOPENTAL [Suspect]
     Active Substance: THIOPENTAL
     Indication: FOETAL EXPOSURE DURING PREGNANCY
     Route: 042
  32. ATIVAN [Suspect]
     Active Substance: LORAZEPAM
     Indication: FOETAL EXPOSURE DURING PREGNANCY
  33. DIAZEPAM. [Suspect]
     Active Substance: DIAZEPAM
     Indication: FOETAL EXPOSURE DURING PREGNANCY
  34. MIDAZOLAM. [Suspect]
     Active Substance: MIDAZOLAM
     Indication: FOETAL EXPOSURE DURING PREGNANCY
  35. SUCCINYLCHOLINE CHLORIDE. [Suspect]
     Active Substance: SUCCINYLCHOLINE CHLORIDE
     Indication: ENDOTRACHEAL INTUBATION
     Dosage: DOSAGE FORM: LIQUID INTRAVENOUS
     Route: 065
  36. THIOPENTAL [Suspect]
     Active Substance: THIOPENTAL
     Indication: SEIZURE
     Route: 042
  37. THIOPENTAL [Suspect]
     Active Substance: THIOPENTAL
     Route: 042
  38. PROPOFOL. [Suspect]
     Active Substance: PROPOFOL
     Indication: SEIZURE
     Route: 065
  39. THIOPENTAL [Suspect]
     Active Substance: THIOPENTAL
     Route: 042
  40. 5% DEXTROSE INJECTION [Suspect]
     Active Substance: DEXTROSE
     Indication: PRODUCT USED FOR UNKNOWN INDICATION
     Dosage: DOSAGE FORM: SOLUTION INTRAVENOUS
     Route: 042
  41. MIDAZOLAM. [Suspect]
     Active Substance: MIDAZOLAM
     Indication: SEIZURE
     Route: 065
  42. MIDAZOLAM. [Suspect]
     Active Substance: MIDAZOLAM
     Indication: STATUS EPILEPTICUS
  43. SUCCINYLCHOLINE CHLORIDE. [Suspect]
     Active Substance: SUCCINYLCHOLINE CHLORIDE
     Indication: FOETAL EXPOSURE DURING PREGNANCY
  44. THIOPENTAL [Suspect]
     Active Substance: THIOPENTAL
     Dosage: DOSAGE FORM: INTRAVENOUS INFUSION
     Route: 042
  45. PHENYLEPHRINE [Suspect]
     Active Substance: PHENYLEPHRINE HYDROCHLORIDE
     Indication: HYPOTENSION
     Dosage: SOLUTION OPHTHALMIC
     Route: 065
  46. PROPOFOL. [Suspect]
     Active Substance: PROPOFOL
     Indication: STATUS EPILEPTICUS
     Dosage: DOSAGE FORM: ORAL EMULSION
     Route: 042

REACTIONS (23)
  - Blood magnesium decreased [Recovered/Resolved]
  - Renal ischaemia [Recovered/Resolved]
  - Blood bicarbonate decreased [Recovered/Resolved]
  - Clonus [Recovered/Resolved]
  - Oxygen saturation abnormal [Recovered/Resolved]
  - Status epilepticus [Recovered/Resolved]
  - Off label use [Not Recovered/Not Resolved]
  - Electroencephalogram abnormal [Recovered/Resolved]
  - Encephalopathy [Recovered/Resolved]
  - Diabetes insipidus [Recovered/Resolved]
  - Drug ineffective [Recovered/Resolved]
  - Loss of consciousness [Recovered/Resolved]
  - Left ventricular dysfunction [Recovered/Resolved]
  - Blood calcium decreased [Recovered/Resolved]
  - Maternal exposure during pregnancy [Recovered/Resolved]
  - Foetal exposure during pregnancy [Fatal]
  - Blood pH decreased [Recovered/Resolved]
  - PCO2 increased [Recovered/Resolved]
  - PO2 increased [Recovered/Resolved]
  - Seizure [Recovered/Resolved]
  - Renal impairment [Recovered/Resolved]
  - Foetal death [Not Recovered/Not Resolved]
  - Hypotension [Recovered/Resolved]
